FAERS Safety Report 5963161-9 (Version None)
Quarter: 2008Q4

REPORT INFORMATION
  Report Type: 
  Country: None (occurrence: None)
  Receive Date: 20081119
  Receipt Date: 20080801
  Transmission Date: 20090506
  Serious: No
  Sender: FDA-Public Use
  Company Number: WAES 0808USA00217

PATIENT
  Age: 62 Year
  Sex: Female

DRUGS (4)
  1. JANUVIA [Suspect]
     Indication: TYPE 2 DIABETES MELLITUS
     Dosage: 25 MG/BID/PO
     Route: 048
     Dates: start: 20080606
  2. ACCUPRIL [Concomitant]
  3. NORVASC [Concomitant]
  4. TOPROL-XL [Concomitant]

REACTIONS (3)
  - INAPPROPRIATE SCHEDULE OF DRUG ADMINISTRATION [None]
  - JOINT SWELLING [None]
  - OEDEMA PERIPHERAL [None]
